FAERS Safety Report 4737058-6 (Version None)
Quarter: 2005Q3

REPORT INFORMATION
  Report Type: 
  Country: None (occurrence: None)
  Receive Date: 20050804
  Receipt Date: 20050722
  Transmission Date: 20060218
  Serious: Yes (Death)
  Sender: FDA-Public Use
  Company Number: HQWYE522426JUL05

PATIENT
  Age: 59 Year

DRUGS (3)
  1. RAPAMUNE [Suspect]
     Indication: PROPHYLAXIS AGAINST TRANSPLANT REJECTION
     Dosage: ORAL
     Route: 048
     Dates: start: 20040928
  2. PREDNISONE [Concomitant]
  3. AZATHIOPRINE [Concomitant]

REACTIONS (4)
  - INTERSTITIAL LUNG DISEASE [None]
  - PNEUMONITIS [None]
  - RENAL FAILURE ACUTE [None]
  - STREPTOCOCCAL INFECTION [None]
